FAERS Safety Report 14497879 (Version 1)
Quarter: 2018Q1

REPORT INFORMATION
  Report Type: Spontaneous
  Country: HK (occurrence: HK)
  Receive Date: 20180206
  Receipt Date: 20180206
  Transmission Date: 20180509
  Serious: Yes (Hospitalization, Disabling, Other)
  Sender: FDA-Public Use
  Company Number: None

PATIENT
  Age: 11 Month
  Sex: Male
  Weight: 9.45 kg

DRUGS (1)
  1. HYDROCORTISONE. [Suspect]
     Active Substance: HYDROCORTISONE
     Indication: ECZEMA
     Dosage: ?          QUANTITY:1 PATCH(ES);?
     Route: 062
     Dates: start: 20170621, end: 20170705

REACTIONS (7)
  - Red man syndrome [None]
  - Drug ineffective [None]
  - Rebound effect [None]
  - Pityriasis rosea [None]
  - Pruritus [None]
  - Drug dependence [None]
  - Rash [None]

NARRATIVE: CASE EVENT DATE: 20170816
